FAERS Safety Report 11857392 (Version 1)
Quarter: 2015Q4

REPORT INFORMATION
  Report Type: Report from Study
  Country: US (occurrence: US)
  Receive Date: 20151221
  Receipt Date: 20151221
  Transmission Date: 20160305
  Serious: Yes (Hospitalization)
  Sender: FDA-Public Use
  Company Number: US-THERATECHNOLOGIES, INC.-TH-2015-00002

PATIENT
  Age: 43 Year
  Sex: Male
  Weight: 76.7 kg

DRUGS (16)
  1. DOCUSATE [Concomitant]
     Active Substance: DOCUSATE
     Indication: CONSTIPATION
     Dosage: 200 MILLIGRAM
     Route: 048
     Dates: start: 20141120
  2. METOPROLOL [Concomitant]
     Active Substance: METOPROLOL
     Indication: HYPERTENSION
     Dosage: 2 DOSAGE FORMS
     Route: 048
     Dates: start: 20141126
  3. FENTANYL. [Concomitant]
     Active Substance: FENTANYL
     Indication: PAIN IN EXTREMITY
     Route: 062
     Dates: start: 2014
  4. XANAX [Concomitant]
     Active Substance: ALPRAZOLAM
     Indication: ANXIETY
     Dosage: 4 MILLIGRAM
     Route: 048
     Dates: start: 20110420
  5. AMBIEN [Concomitant]
     Active Substance: ZOLPIDEM TARTRATE
     Indication: INSOMNIA
     Dosage: 10 MILLIGRAM
     Route: 048
     Dates: start: 20110420
  6. METRONIDAZOLE. [Concomitant]
     Active Substance: METRONIDAZOLE
     Indication: LARGE INTESTINE PERFORATION
     Dosage: 1500 MILLIGRAM
     Route: 048
     Dates: start: 2014, end: 20141207
  7. KETAMINE [Concomitant]
     Active Substance: KETAMINE
     Indication: DEPRESSION
     Dosage: 7.1429 MILLIGRAM
     Route: 042
     Dates: start: 20120301
  8. STRIBILD [Concomitant]
     Active Substance: COBICISTAT\ELVITEGRAVIR\EMTRICITABINE\TENOFOVIR DISOPROXIL FUMARATE
     Indication: HIV INFECTION
     Dosage: 1 DOSAGE FORMS
     Route: 048
     Dates: start: 20130723
  9. METHAMPHETAMINE [Concomitant]
     Active Substance: METHAMPHETAMINE
     Indication: ATTENTION DEFICIT/HYPERACTIVITY DISORDER
     Dosage: 40 MILLIGRAM
     Route: 048
     Dates: start: 2008
  10. TESTOSTERONE. [Concomitant]
     Active Substance: TESTOSTERONE
     Indication: HYPOGONADISM
     Dosage: 14.2857 MILLIGRAM
     Route: 030
     Dates: start: 2011
  11. BUPROPION XL [Concomitant]
     Active Substance: BUPROPION
     Indication: ATTENTION DEFICIT/HYPERACTIVITY DISORDER
     Dosage: 300 MILLIGRAM
     Route: 048
     Dates: start: 1994
  12. NORCO [Concomitant]
     Active Substance: ACETAMINOPHEN\HYDROCODONE BITARTRATE
     Indication: PAIN IN EXTREMITY
     Route: 048
     Dates: start: 20141205
  13. NANDROLONE [Concomitant]
     Active Substance: NANDROLONE
     Indication: HYPOGONADISM
     Dosage: 14.2857 MILLIGRAM
     Route: 030
     Dates: start: 2011
  14. CIPROFLOXACIN. [Concomitant]
     Active Substance: CIPROFLOXACIN
     Indication: LARGE INTESTINE PERFORATION
     Dosage: 1000 MILLIGRAM
     Route: 048
     Dates: start: 2014
  15. EGRIFTA [Suspect]
     Active Substance: TESAMORELIN
     Indication: LIPOHYPERTROPHY
     Dosage: 2 MILLIGRAM
     Route: 058
     Dates: start: 20141202
  16. LISINOPRIL. [Concomitant]
     Active Substance: LISINOPRIL
     Indication: HYPERTENSION
     Dosage: 20 MILLIGRAM
     Route: 048
     Dates: start: 20141126

REACTIONS (1)
  - Testicular pain [Recovered/Resolved]

NARRATIVE: CASE EVENT DATE: 20141205
